FAERS Safety Report 20933335 (Version 1)
Quarter: 2022Q2

REPORT INFORMATION
  Report Type: Spontaneous
  Country: SA (occurrence: SA)
  Receive Date: 20220608
  Receipt Date: 20220608
  Transmission Date: 20220721
  Serious: Yes (Hospitalization, Other)
  Sender: FDA-Public Use
  Company Number: SA-NOVARTISPH-NVSC2022SA130605

PATIENT
  Age: 49 Year
  Sex: Female

DRUGS (5)
  1. CEFTRIAXONE [Suspect]
     Active Substance: CEFTRIAXONE
     Indication: Upper respiratory tract infection
     Dosage: 1 G, QD
     Route: 042
  2. PREDNISOLONE [Concomitant]
     Active Substance: PREDNISOLONE
     Indication: Evidence based treatment
     Dosage: 0.5 MG/KG, QD
     Route: 048
  3. PREDNISOLONE [Concomitant]
     Active Substance: PREDNISOLONE
     Dosage: 2 MG/KG, QD(1-2 MG/KG,QD)
     Route: 048
  4. PREDNISOLONE [Concomitant]
     Active Substance: PREDNISOLONE
     Dosage: 5 MG EVERY 3 DAYS
     Route: 048
  5. CETIRIZINE [Concomitant]
     Active Substance: CETIRIZINE HYDROCHLORIDE
     Indication: Evidence based treatment
     Dosage: 10 MG, QD
     Route: 048

REACTIONS (2)
  - Cutaneous vasculitis [Recovering/Resolving]
  - Product use in unapproved indication [Unknown]
